FAERS Safety Report 17525614 (Version 1)
Quarter: 2020Q1

REPORT INFORMATION
  Report Type: Spontaneous
  Country: US (occurrence: US)
  Receive Date: 20200311
  Receipt Date: 20200311
  Transmission Date: 20200409
  Serious: No
  Sender: FDA-Public Use
  Company Number: US-MYLANLABS-2020M1025745

PATIENT
  Sex: Female
  Weight: 68 kg

DRUGS (1)
  1. EPINEPHRINE INJECTION USP AUTO-INJECTOR [Suspect]
     Active Substance: EPINEPHRINE
     Indication: PRODUCT USED FOR UNKNOWN INDICATION
     Dosage: 15 MILLIGRAM, ONCE
     Route: 030
     Dates: start: 20200304, end: 20200304

REACTIONS (8)
  - Heart rate increased [Recovering/Resolving]
  - Accidental exposure to product [Recovering/Resolving]
  - Product quality issue [Unknown]
  - Feeling abnormal [Recovered/Resolved]
  - Erythema [Not Recovered/Not Resolved]
  - Blood pressure increased [Recovering/Resolving]
  - Injection site bruising [Not Recovered/Not Resolved]
  - Paraesthesia [Not Recovered/Not Resolved]

NARRATIVE: CASE EVENT DATE: 20200304
